FAERS Safety Report 11230709 (Version 2)
Quarter: 2015Q3

REPORT INFORMATION
  Report Type: Spontaneous
  Country: FR (occurrence: None)
  Receive Date: 20150629
  Receipt Date: 20150724
  Transmission Date: 20151125
  Serious: Yes (Hospitalization)
  Sender: FDA-Public Use
  Company Number: 2015FE02100

PATIENT
  Age: 88 Year
  Sex: Male
  Weight: 74 kg

DRUGS (2)
  1. PARIET (RABEPRAZOLE SODIUM) [Concomitant]
  2. FIRMAGON [Suspect]
     Active Substance: DEGARELIX ACETATE
     Indication: PROSTATE CANCER
     Route: 058
     Dates: start: 201211

REACTIONS (3)
  - Deep vein thrombosis [None]
  - Abdominal mass [None]
  - Prostate cancer metastatic [None]

NARRATIVE: CASE EVENT DATE: 20140723
